FAERS Safety Report 7014283-5 (Version None)
Quarter: 2010Q3

REPORT INFORMATION
  Report Type: 
  Country: None (occurrence: None)
  Receive Date: 20100922
  Receipt Date: 20100914
  Transmission Date: 20110219
  Serious: Yes (Other)
  Sender: FDA-Public Use
  Company Number: 018761

PATIENT
  Sex: Male

DRUGS (3)
  1. KEPPRA [Suspect]
     Indication: CONVULSION
  2. MINOXIDIL [Suspect]
     Indication: ALOPECIA
     Dosage: 5% FOAM TOPICAL
     Route: 061
  3. DEXAMETHASONE [Suspect]
     Indication: STEROID THERAPY

REACTIONS (2)
  - CONDITION AGGRAVATED [None]
  - MENINGIOMA [None]
